FAERS Safety Report 9878112 (Version 2)
Quarter: 2014Q1

REPORT INFORMATION
  Report Type: Spontaneous
  Country: IE (occurrence: IE)
  Receive Date: 20140206
  Receipt Date: 20140324
  Transmission Date: 20141002
  Serious: Yes (Hospitalization)
  Sender: FDA-Public Use
  Company Number: IE-BAYER-2014-016034

PATIENT
  Age: 17 Year
  Sex: Female

DRUGS (1)
  1. MICROLITE [Suspect]
     Indication: ORAL CONTRACEPTION
     Dosage: 1 DF, QD
     Route: 048
     Dates: start: 20131101, end: 20131201

REACTIONS (2)
  - Hepatitis [Not Recovered/Not Resolved]
  - Cholestasis [Not Recovered/Not Resolved]
